FAERS Safety Report 5669866-1 (Version None)
Quarter: 2008Q1

REPORT INFORMATION
  Report Type: 
  Country: None (occurrence: None)
  Receive Date: 20080317
  Receipt Date: 20080310
  Transmission Date: 20080703
  Serious: Yes (Disabling)
  Sender: FDA-Public Use
  Company Number: BG-PFIZER INC-2008008755

PATIENT
  Sex: Male
  Weight: 7 kg

DRUGS (12)
  1. GENOTROPIN [Suspect]
     Indication: GROWTH RETARDATION
     Route: 058
     Dates: start: 20070501, end: 20080118
  2. L-THYROXIN [Suspect]
     Indication: HYPOTHYROIDISM
     Dosage: FREQ:50MCG D1-2, 7MCG FROM D3
     Route: 048
     Dates: start: 20050901, end: 20080120
  3. L-THYROXIN [Suspect]
     Dosage: FREQ:50MCG, DAILY
     Route: 048
  4. NEORECORMON ^ROCHE^ [Concomitant]
     Route: 058
  5. MALTOFER [Concomitant]
     Route: 048
  6. ROCALTROL [Concomitant]
     Route: 048
  7. CALCIUM GLUCONATE [Concomitant]
     Route: 048
  8. KETOSTERIL [Concomitant]
     Route: 048
  9. SORBISTERIT-CALCIUM [Concomitant]
     Route: 048
  10. NIFEDIPINE [Concomitant]
     Route: 048
     Dates: start: 20070601, end: 20080117
  11. ENALAPRIL MALEATE [Concomitant]
     Route: 048
     Dates: start: 20050901, end: 20070117
  12. VENOFER [Concomitant]
     Route: 042

REACTIONS (3)
  - BLINDNESS [None]
  - MYDRIASIS [None]
  - PUPILLARY REFLEX IMPAIRED [None]
